FAERS Safety Report 8876624 (Version 1)
Quarter: 2012Q4

REPORT INFORMATION
  Report Type: 
  Country: DE (occurrence: DE)
  Receive Date: 20121029
  Receipt Date: 20121029
  Transmission Date: 20130627
  Serious: Yes (Other)
  Sender: FDA-Public Use
  Company Number: PHHY2012DE096752

PATIENT

DRUGS (3)
  1. DIHYDRALAZINE SULFATE [Suspect]
     Indication: HYPERTENSION
     Dosage: maternal dose: 75 mg daily
     Route: 064
  2. METOPROLOL [Suspect]
     Indication: HYPERTENSION
     Dosage: Maternal dose: 200 mg daily
     Route: 064
  3. NACOM [Concomitant]

REACTIONS (4)
  - Small for dates baby [Unknown]
  - Low birth weight baby [Unknown]
  - Foetal exposure during pregnancy [Unknown]
  - Maternal drugs affecting foetus [None]
